FAERS Safety Report 13191908 (Version 3)
Quarter: 2017Q1

REPORT INFORMATION
  Report Type: Report from Study
  Country: US (occurrence: US)
  Receive Date: 20170207
  Receipt Date: 20170215
  Transmission Date: 20170428
  Serious: Yes (Other)
  Sender: FDA-Public Use
  Company Number: US-GILEAD-2015-0177946

PATIENT
  Age: 61 Year
  Sex: Female

DRUGS (1)
  1. AMBRISENTAN [Suspect]
     Active Substance: AMBRISENTAN
     Indication: PULMONARY ARTERIAL HYPERTENSION
     Dosage: 10 MG, UNK
     Route: 065
     Dates: start: 20130315

REACTIONS (6)
  - Spinal fusion surgery [Unknown]
  - Respiratory tract infection [Unknown]
  - Gait disturbance [Unknown]
  - Dizziness [Unknown]
  - Respiratory disorder [Unknown]
  - Surgery [Unknown]

NARRATIVE: CASE EVENT DATE: 201610
